FAERS Safety Report 17565830 (Version 1)
Quarter: 2020Q1

REPORT INFORMATION
  Report Type: Spontaneous
  Country: GB (occurrence: GB)
  Receive Date: 20200320
  Receipt Date: 20200320
  Transmission Date: 20200409
  Serious: Yes (Hospitalization, Other)
  Sender: FDA-Public Use
  Company Number: GB-PFIZER INC-2020115920

PATIENT
  Age: 82 Year
  Sex: Male

DRUGS (2)
  1. OXALIPLATIN. [Suspect]
     Active Substance: OXALIPLATIN
     Dosage: UNK
  2. FOLINIC ACID [Suspect]
     Active Substance: LEUCOVORIN
     Dosage: UNK

REACTIONS (2)
  - Circulatory collapse [Unknown]
  - Diarrhoea [Unknown]
